FAERS Safety Report 4685390-7 (Version None)
Quarter: 2005Q2

REPORT INFORMATION
  Report Type: 
  Country: None (occurrence: None)
  Receive Date: 20050608
  Receipt Date: 20050310
  Transmission Date: 20051028
  Serious: Yes (Death)
  Sender: FDA-Public Use
  Company Number: GB-GLAXOSMITHKLINE-B0375352A

PATIENT
  Age: 28 Year
  Sex: Male
  Weight: 71 kg

DRUGS (8)
  1. LAMOTRIGINE [Suspect]
     Indication: EPILEPSY
     Route: 048
     Dates: start: 20001108, end: 20011213
  2. PAROXETINE HCL [Suspect]
     Indication: DEPRESSION
     Dosage: 40MG PER DAY
     Dates: start: 20010531
  3. METHADONE HCL [Suspect]
     Indication: DEPENDENCE
     Dosage: 20MG PER DAY
     Dates: start: 20000101
  4. MORPHINE [Suspect]
  5. BENZODIAZEPINE [Suspect]
  6. EPILIM [Concomitant]
     Indication: EPILEPSY
     Dosage: 500MG TWICE PER DAY
     Dates: start: 20000401
  7. TOPAMAX [Concomitant]
     Indication: EPILEPSY
     Dosage: 125MG PER DAY
     Dates: start: 20011213
  8. ZOPICLONE [Concomitant]
     Indication: INSOMNIA
     Dosage: 15MG AT NIGHT
     Dates: start: 20000101

REACTIONS (1)
  - DRUG TOXICITY [None]
